FAERS Safety Report 10228990 (Version 1)
Quarter: 2014Q2

REPORT INFORMATION
  Report Type: Spontaneous
  Country: IT (occurrence: IT)
  Receive Date: 20140610
  Receipt Date: 20140610
  Transmission Date: 20141212
  Serious: Yes (Hospitalization)
  Sender: FDA-Public Use
  Company Number: IT-GLAXOSMITHKLINE-B1001981A

PATIENT
  Age: 3 Year
  Sex: Female

DRUGS (2)
  1. ZOVIRAX [Suspect]
     Indication: ACCIDENTAL EXPOSURE TO PRODUCT
     Route: 048
     Dates: start: 20140523
  2. ACYCLOVIR [Concomitant]
     Indication: VARICELLA
     Dosage: 4ML THREE TIMES PER DAY
     Dates: start: 20140519

REACTIONS (2)
  - Overdose [Unknown]
  - Transaminases increased [Recovered/Resolved]
